FAERS Safety Report 22283841 (Version 4)
Quarter: 2024Q1

REPORT INFORMATION
  Report Type: Report from Study
  Country: BE (occurrence: BE)
  Receive Date: 20230504
  Receipt Date: 20240321
  Transmission Date: 20240409
  Serious: Yes (Hospitalization)
  Sender: FDA-Public Use
  Company Number: BE-AMGEN-BELNI2023074910

PATIENT
  Age: 59 Year
  Sex: Female
  Weight: 85 kg

DRUGS (16)
  1. DENOSUMAB [Suspect]
     Active Substance: DENOSUMAB
     Indication: Bone disorder
     Dosage: 120 MILLIGRAM, QMO
     Route: 058
     Dates: start: 20230120
  2. ALECTINIB [Suspect]
     Active Substance: ALECTINIB
     Indication: Non-small cell lung cancer metastatic
     Dosage: 600 MILLIGRAM, START DATE OF RECENT MOST RECENT DOSE PRIOR TO GENERAL DETERIORATION 19/MAY/2023 (600
     Route: 048
     Dates: start: 20230120
  3. FENTANYL [Concomitant]
     Active Substance: FENTANYL\FENTANYL CITRATE
     Indication: Pain
     Dosage: 75 MICROGRAM, QD
     Dates: start: 20230320, end: 20230422
  4. FENTANYL [Concomitant]
     Active Substance: FENTANYL\FENTANYL CITRATE
     Dosage: 3 DAY
     Dates: start: 20230426
  5. CALCIUM CARBONATE\CHOLECALCIFEROL [Concomitant]
     Active Substance: CALCIUM CARBONATE\CHOLECALCIFEROL
     Dosage: 1000 MILLIGRAM, QD
     Dates: start: 20230120
  6. MAGNESIUM [Concomitant]
     Active Substance: MAGNESIUM
     Dosage: 450 MILLIGRAM, QD
  7. DAFALGAN [Concomitant]
     Active Substance: ACETAMINOPHEN
     Indication: Pain
     Dosage: 1 GRAM, TID
  8. OXYCODONE HYDROCHLORIDE [Concomitant]
     Active Substance: OXYCODONE HYDROCHLORIDE
     Indication: Pain
     Dosage: 5 MILLIGRAM
  9. TRAMADOL HYDROCHLORIDE [Concomitant]
     Active Substance: TRAMADOL HYDROCHLORIDE
     Indication: Pain
     Dosage: UNK, QID, MEDICATION DOSE FORM: OTHERMEDICATION DOSE: 40 OTHER
  10. FENTANYL [Concomitant]
     Active Substance: FENTANYL\FENTANYL CITRATE
     Indication: Pain
     Dosage: 50 MICROGRAM, QD (MEDICATION DOSE FORM: PATCH)
     Dates: end: 20230316
  11. FENTANYL [Concomitant]
     Active Substance: FENTANYL\FENTANYL CITRATE
     Dosage: 50 MICROGRAM 3 DAY
     Dates: start: 20230423, end: 20230425
  12. PRIMPERAN [Concomitant]
     Active Substance: METOCLOPRAMIDE HYDROCHLORIDE
     Indication: Nausea
     Dosage: 10 MILLILITER (MEDICATION DOSE FORM: LIQUID)
  13. AMOXICILLIN [Concomitant]
     Active Substance: AMOXICILLIN
     Dosage: 1000 MILLIGRAM, TID
     Dates: start: 20230422, end: 20230426
  14. ACETAMINOPHEN [Concomitant]
     Active Substance: ACETAMINOPHEN
     Dosage: 1 GRAM, TID
     Dates: start: 20230422, end: 20230426
  15. ENOXAPARIN SODIUM [Concomitant]
     Active Substance: ENOXAPARIN SODIUM
     Dosage: 40 MILLIGRAM, QD
     Dates: start: 20230422, end: 20230430
  16. ENOXAPARIN SODIUM [Concomitant]
     Active Substance: ENOXAPARIN SODIUM
     Dosage: UNK
     Dates: start: 20230519, end: 20230521

REACTIONS (6)
  - Large intestine perforation [Recovered/Resolved]
  - General physical health deterioration [Recovered/Resolved]
  - Hypocalcaemia [Recovered/Resolved]
  - Chest pain [Not Recovered/Not Resolved]
  - Overflow diarrhoea [Not Recovered/Not Resolved]
  - Decreased appetite [Not Recovered/Not Resolved]

NARRATIVE: CASE EVENT DATE: 20230203
